FAERS Safety Report 4789562-2 (Version None)
Quarter: 2005Q4

REPORT INFORMATION
  Report Type: 
  Country: None (occurrence: None)
  Receive Date: 20051006
  Receipt Date: 20050927
  Transmission Date: 20060501
  Serious: Yes (Hospitalization)
  Sender: FDA-Public Use
  Company Number: US-JNJFOC-20050802656

PATIENT
  Sex: Female
  Weight: 86.64 kg

DRUGS (8)
  1. REMICADE [Suspect]
     Indication: RHEUMATOID ARTHRITIS
     Route: 042
  2. PREDNISONE [Concomitant]
  3. ARAVA [Concomitant]
  4. COUMADIN [Concomitant]
  5. ZETIA [Concomitant]
  6. PAXIL [Concomitant]
  7. TOPROL-XL [Concomitant]
  8. PROTONIX [Concomitant]

REACTIONS (2)
  - ATRIAL FIBRILLATION [None]
  - MYCOBACTERIUM AVIUM COMPLEX INFECTION [None]
